FAERS Safety Report 14191668 (Version 8)
Quarter: 2018Q3

REPORT INFORMATION
  Report Type: Spontaneous
  Country: GB (occurrence: GB)
  Receive Date: 20171115
  Receipt Date: 20180731
  Transmission Date: 20181010
  Serious: Yes (Other)
  Sender: FDA-Public Use
  Company Number: GB-DRREDDYS-GER/UKI/17/0094539

PATIENT
  Age: 17 Year
  Sex: Female

DRUGS (31)
  1. DOCETAXEL. [Suspect]
     Active Substance: DOCETAXEL
     Indication: MALIGNANT NEOPLASM PROGRESSION
  2. IFOSFAMIDE INJECTION 2G [Suspect]
     Active Substance: IFOSFAMIDE
     Indication: DESMOPLASTIC SMALL ROUND CELL TUMOUR
     Dosage: IVA 5 CYCLES
     Route: 065
  3. PEGYLATED LIPOSOMAL IRINOTECAN [Suspect]
     Active Substance: IRINOTECAN HYDROCHLORIDE
     Indication: MALIGNANT NEOPLASM PROGRESSION
     Dosage: 3 LINES OF CHEMOTHERAPY
     Route: 065
  4. VINCRISTINE [Suspect]
     Active Substance: VINCRISTINE
     Indication: DESMOPLASTIC SMALL ROUND CELL TUMOUR
     Dosage: 4 CYCLES
     Route: 042
  5. VINCRISTINE [Suspect]
     Active Substance: VINCRISTINE
     Indication: MALIGNANT NEOPLASM PROGRESSION
     Dosage: THREE LINES OF CHEMOTHERAPY
     Route: 042
  6. VINORELBINE [Suspect]
     Active Substance: VINORELBINE\VINORELBINE TARTRATE
     Indication: DESMOPLASTIC SMALL ROUND CELL TUMOUR
     Dosage: 4 CYCLES, MAINTENANCE THERAPY
     Route: 065
  7. IFOSFAMIDE INJECTION 2G [Suspect]
     Active Substance: IFOSFAMIDE
     Dosage: 4 CYCLES
     Route: 065
  8. PEGYLATED LIPOSOMAL IRINOTECAN [Suspect]
     Active Substance: IRINOTECAN HYDROCHLORIDE
     Indication: DESMOPLASTIC SMALL ROUND CELL TUMOUR
     Route: 065
  9. CYCLIZINE [Suspect]
     Active Substance: CYCLIZINE
     Indication: PRODUCT USED FOR UNKNOWN INDICATION
     Route: 065
  10. CYCLOPHOSPHAMIDE INJECTION 1G [Suspect]
     Active Substance: CYCLOPHOSPHAMIDE
     Indication: MALIGNANT NEOPLASM PROGRESSION
     Dosage: 4 CYCLES, MAINTENANCE THERAPY
     Route: 065
  11. IRINOTECAN [Suspect]
     Active Substance: IRINOTECAN
     Indication: MALIGNANT NEOPLASM PROGRESSION
  12. TOPOTECAN [Suspect]
     Active Substance: TOPOTECAN HYDROCHLORIDE
     Indication: DESMOPLASTIC SMALL ROUND CELL TUMOUR
     Dosage: 3 LINES OF CHEMOTHERAPY
     Route: 065
  13. VINCRISTINE [Suspect]
     Active Substance: VINCRISTINE
     Dosage: IVA 5 CYCLES
     Route: 042
  14. ACTINOMYCIN D [Suspect]
     Active Substance: DACTINOMYCIN
     Dosage: 4 CYCLES
     Route: 065
  15. DOCETAXEL. [Suspect]
     Active Substance: DOCETAXEL
     Indication: DESMOPLASTIC SMALL ROUND CELL TUMOUR
     Dosage: 3 LINES OF CHEMOTHERAPY
     Route: 065
  16. GEMCITABINE [Suspect]
     Active Substance: GEMCITABINE\GEMCITABINE HYDROCHLORIDE
     Indication: DESMOPLASTIC SMALL ROUND CELL TUMOUR
     Dosage: 3 LINES OF CHEMOTHERAPY
     Route: 065
  17. TEMOZOLOMIDE. [Suspect]
     Active Substance: TEMOZOLOMIDE
     Indication: DESMOPLASTIC SMALL ROUND CELL TUMOUR
     Dosage: 3 LINES OF CHEMOTHERAPY
     Route: 065
  18. TOPOTECAN [Suspect]
     Active Substance: TOPOTECAN HYDROCHLORIDE
     Indication: MALIGNANT NEOPLASM PROGRESSION
  19. ACTINOMYCIN D [Suspect]
     Active Substance: DACTINOMYCIN
     Indication: DESMOPLASTIC SMALL ROUND CELL TUMOUR
     Dosage: IVA 5 CYCLES
     Route: 042
  20. PAZOPANIB [Concomitant]
     Active Substance: PAZOPANIB
     Indication: PRODUCT USED FOR UNKNOWN INDICATION
  21. ONDANSETRON [Concomitant]
     Active Substance: ONDANSETRON
     Indication: PRODUCT USED FOR UNKNOWN INDICATION
     Dosage: 8 MG, PRN
     Route: 065
  22. CYCLOPHOSPHAMIDE INJECTION 1G [Suspect]
     Active Substance: CYCLOPHOSPHAMIDE
     Indication: DESMOPLASTIC SMALL ROUND CELL TUMOUR
     Dosage: 3 LINES OF CHEMOTHERAPY
     Route: 065
  23. IRINOTECAN [Suspect]
     Active Substance: IRINOTECAN
     Indication: DESMOPLASTIC SMALL ROUND CELL TUMOUR
     Dosage: 3 LINES OF CHEMOTHERAPY
     Route: 065
  24. DOXORUBICIN [Suspect]
     Active Substance: DOXORUBICIN
     Indication: DESMOPLASTIC SMALL ROUND CELL TUMOUR
     Dosage: 4 CYCLES
     Route: 065
  25. PEGYLATED LIPOSOMAL IRINOTECAN [Suspect]
     Active Substance: IRINOTECAN HYDROCHLORIDE
     Indication: OFF LABEL USE
  26. GEMCITABINE [Suspect]
     Active Substance: GEMCITABINE\GEMCITABINE HYDROCHLORIDE
     Indication: MALIGNANT NEOPLASM PROGRESSION
     Dosage: 3 LINES OF CHEMOTHERAPY
     Route: 065
  27. TEMOZOLOMIDE. [Suspect]
     Active Substance: TEMOZOLOMIDE
     Indication: MALIGNANT NEOPLASM PROGRESSION
  28. MELATONIN [Suspect]
     Active Substance: MELATONIN
     Indication: PRODUCT USED FOR UNKNOWN INDICATION
     Route: 065
  29. ONDANSETRON [Suspect]
     Active Substance: ONDANSETRON
     Indication: PRODUCT USED FOR UNKNOWN INDICATION
     Route: 065
  30. ACTINOMYCIN D [Suspect]
     Active Substance: DACTINOMYCIN
     Dosage: 4 CYCLES: CYCLICAL
     Route: 042
  31. SEPTRIN [Concomitant]
     Active Substance: SULFAMETHOXAZOLE\TRIMETHOPRIM
     Indication: PRODUCT USED FOR UNKNOWN INDICATION
     Dosage: SATURDAY AND SUNDAY
     Route: 065

REACTIONS (9)
  - Drug effect incomplete [Unknown]
  - Desmoplastic small round cell tumour [Unknown]
  - Ascites [Recovering/Resolving]
  - Metastases to lymph nodes [Unknown]
  - Drug ineffective [Unknown]
  - Metastases to liver [Unknown]
  - Metastases to peritoneum [Unknown]
  - Off label use [Unknown]
  - Malignant neoplasm progression [Unknown]

NARRATIVE: CASE EVENT DATE: 2017
